FAERS Safety Report 18600671 (Version 1)
Quarter: 2020Q4

REPORT INFORMATION
  Report Type: Spontaneous
  Country: US (occurrence: US)
  Receive Date: 20201210
  Receipt Date: 20201210
  Transmission Date: 20210114
  Serious: Yes (Other)
  Sender: FDA-Public Use
  Company Number: US-PFIZER INC-2020484200

PATIENT
  Age: 66 Year
  Sex: Male
  Weight: 87.54 kg

DRUGS (5)
  1. EZETIMIBE. [Concomitant]
     Active Substance: EZETIMIBE
     Indication: CARDIAC DISORDER
     Dosage: 10 MG, 1X/DAY
  2. HYDROCHLOROTHIAZIDE. [Concomitant]
     Active Substance: HYDROCHLOROTHIAZIDE
     Indication: CARDIAC DISORDER
     Dosage: 25 MG, 1X/DAY
  3. XALKORI [Suspect]
     Active Substance: CRIZOTINIB
     Dosage: UNK, 1X/DAY (I USE IT TWICE A DAY MONDAY, TUESDAY WEDNESDAY AND ONCE A DAY EVERY OTHER DAY)
  4. LISINOPRIL. [Concomitant]
     Active Substance: LISINOPRIL
     Indication: CARDIAC DISORDER
     Dosage: 2.5 MG, 1X/DAY
  5. XALKORI [Suspect]
     Active Substance: CRIZOTINIB
     Indication: LUNG NEOPLASM MALIGNANT
     Dosage: UNK, 2X/DAY (I USE IT TWICE A DAY MONDAY, TUESDAY WEDNESDAY AND ONCE A DAY EVERY OTHER DAY)

REACTIONS (9)
  - Influenza [Unknown]
  - Renal impairment [Unknown]
  - Weight increased [Unknown]
  - Dysgeusia [Unknown]
  - Generalised oedema [Unknown]
  - Blood test abnormal [Unknown]
  - Myocardial infarction [Unknown]
  - Pain [Unknown]
  - Ageusia [Unknown]
